FAERS Safety Report 6794794-8 (Version None)
Quarter: 2010Q2

REPORT INFORMATION
  Report Type: 
  Country: None (occurrence: None)
  Receive Date: 20100624
  Receipt Date: 20100624
  Transmission Date: 20101027
  Serious: Yes (Death)
  Sender: FDA-Public Use
  Company Number: None

PATIENT
  Age: 49 Year
  Sex: Male
  Weight: 38.5557 kg

DRUGS (1)
  1. PROZAC [Suspect]
     Indication: DEPRESSION
     Dosage: UNKNOWN AT THIS TIME
     Dates: start: 20100323, end: 20100619

REACTIONS (2)
  - COMPLETED SUICIDE [None]
  - PERSONALITY CHANGE [None]
